FAERS Safety Report 9045624 (Version 1)
Quarter: 2013Q1

REPORT INFORMATION
  Report Type: Spontaneous
  Country: US (occurrence: US)
  Receive Date: 20130131
  Receipt Date: 20130131
  Transmission Date: 20140127
  Serious: No
  Sender: FDA-Public Use
  Company Number: US-ABBOTT-12P-163-1011456-00

PATIENT
  Age: 33 None
  Sex: Female

DRUGS (2)
  1. HUMIRA [Suspect]
     Indication: RHEUMATOID ARTHRITIS
     Route: 058
  2. ANTIBIOTICS [Concomitant]
     Indication: STREPTOCOCCAL INFECTION
     Dates: start: 20121114

REACTIONS (2)
  - Streptococcal infection [Recovering/Resolving]
  - Injection site erythema [Recovered/Resolved]
